FAERS Safety Report 13853482 (Version 1)
Quarter: 2017Q3

REPORT INFORMATION
  Report Type: Spontaneous
  Country: BR (occurrence: BR)
  Receive Date: 20170809
  Receipt Date: 20170809
  Transmission Date: 20171127
  Serious: Yes (Other)
  Sender: FDA-Public Use
  Company Number: BR-BAYER-2017-148534

PATIENT
  Age: 69 Year
  Sex: Male

DRUGS (1)
  1. SORAFENIB (RAF KINASE INHIBITOR) [Suspect]
     Active Substance: SORAFENIB
     Indication: ACUTE MYELOID LEUKAEMIA
     Dosage: 200 MG, BID
     Route: 048

REACTIONS (4)
  - Off label use [None]
  - Product use in unapproved indication [None]
  - Graft versus host disease in gastrointestinal tract [Recovered/Resolved]
  - Gastrointestinal toxicity [Recovered/Resolved]
